FAERS Safety Report 7796854-1 (Version None)
Quarter: 2011Q4

REPORT INFORMATION
  Report Type: 
  Country: None (occurrence: None)
  Receive Date: 20111003
  Receipt Date: 20110922
  Transmission Date: 20120403
  Serious: Yes (Hospitalization, Other)
  Sender: FDA-Public Use
  Company Number: 2011P1009042

PATIENT
  Age: 48 Year
  Sex: Female

DRUGS (13)
  1. SENNA [Concomitant]
  2. RAMIPRIL [Concomitant]
  3. LAMOTRIGINE [Suspect]
     Indication: DEPRESSION
     Dosage: 50 MG; 100 MG; QD
     Dates: end: 20110822
  4. LAMOTRIGINE [Suspect]
     Indication: AFFECTIVE DISORDER
     Dosage: 50 MG; 100 MG; QD
     Dates: end: 20110822
  5. LAMOTRIGINE [Suspect]
     Indication: DEPRESSION
     Dosage: 50 MG; 100 MG; QD
     Dates: start: 20110823, end: 20110825
  6. LAMOTRIGINE [Suspect]
     Indication: AFFECTIVE DISORDER
     Dosage: 50 MG; 100 MG; QD
     Dates: start: 20110823, end: 20110825
  7. LAMOTRIGINE [Suspect]
     Indication: AFFECTIVE DISORDER
     Dosage: 100 MG; QD; PO
     Route: 048
     Dates: start: 20110826, end: 20110830
  8. LAMOTRIGINE [Suspect]
     Indication: DEPRESSION
     Dosage: 100 MG; QD; PO
     Route: 048
     Dates: start: 20110826, end: 20110830
  9. SYNTHROID [Concomitant]
  10. COUMADIN [Concomitant]
  11. COLACE [Concomitant]
  12. COREG [Concomitant]
  13. CELEXA [Concomitant]

REACTIONS (2)
  - DRUG RASH WITH EOSINOPHILIA AND SYSTEMIC SYMPTOMS [None]
  - SKIN EXFOLIATION [None]
